FAERS Safety Report 4753619-2 (Version None)
Quarter: 2005Q3

REPORT INFORMATION
  Report Type: 
  Country: None (occurrence: None)
  Receive Date: 20050826
  Receipt Date: 20050822
  Transmission Date: 20060218
  Serious: Yes (Hospitalization)
  Sender: FDA-Public Use
  Company Number: JP-JNJFOC-20050804621

PATIENT
  Age: 35 Year
  Sex: Female

DRUGS (5)
  1. CRAVIT [Suspect]
     Route: 048
     Dates: start: 20050720, end: 20050720
  2. LEFTOSE [Suspect]
     Route: 048
     Dates: start: 20050720, end: 20050720
  3. RESLIN [Concomitant]
     Route: 048
  4. TAGAMET [Concomitant]
     Route: 065
  5. AMOXAN [Concomitant]
     Route: 048

REACTIONS (5)
  - DYSPHONIA [None]
  - OCULAR HYPERAEMIA [None]
  - PAIN [None]
  - RASH [None]
  - SWELLING [None]
